FAERS Safety Report 5310753-6 (Version None)
Quarter: 2007Q2

REPORT INFORMATION
  Report Type: 
  Country: None (occurrence: None)
  Receive Date: 20070428
  Receipt Date: 20070416
  Transmission Date: 20071010
  Serious: Yes (Other)
  Sender: FDA-Public Use
  Company Number: DE-PFIZER INC-2007027927

PATIENT
  Sex: Male
  Weight: 17.3 kg

DRUGS (2)
  1. GENOTROPIN [Suspect]
     Indication: GROWTH HORMONE DEFICIENCY
     Dates: start: 20040804, end: 20060501
  2. GENOTROPIN [Suspect]
     Dates: start: 20060501, end: 20061005

REACTIONS (1)
  - HYPOTHALAMO-PITUITARY DISORDER [None]
